FAERS Safety Report 5821458-7 (Version None)
Quarter: 2008Q3

REPORT INFORMATION
  Report Type: 
  Country: None (occurrence: None)
  Receive Date: 20080724
  Receipt Date: 20080717
  Transmission Date: 20090109
  Serious: Yes (Disabling)
  Sender: FDA-Public Use
  Company Number: B0516652A

PATIENT
  Age: 58 Year
  Sex: Male

DRUGS (3)
  1. FLUTIDE DISKUS [Suspect]
     Indication: ASTHMA
     Dosage: 100MCG TWICE PER DAY
     Route: 055
     Dates: start: 20040716
  2. BECOTIDE [Suspect]
     Indication: ASTHMA
     Dosage: 100MCG FOUR TIMES PER DAY
     Route: 055
     Dates: start: 20020401, end: 20040430
  3. THEO-DUR [Concomitant]
     Indication: ASTHMA
     Dosage: 400MG PER DAY
     Route: 048
     Dates: start: 20001111, end: 20040901

REACTIONS (1)
  - ANOSMIA [None]
